FAERS Safety Report 19371180 (Version 3)
Quarter: 2021Q4

REPORT INFORMATION
  Report Type: Report from Study
  Country: KR (occurrence: KR)
  Receive Date: 20210604
  Receipt Date: 20211115
  Transmission Date: 20220304
  Serious: Yes (Other)
  Sender: FDA-Public Use
  Company Number: KR-KYOWAKIRIN-2021AKK009219

PATIENT
  Age: 48 Year
  Sex: Female

DRUGS (32)
  1. FILGRASTIM [Suspect]
     Active Substance: FILGRASTIM
     Indication: Product used for unknown indication
     Dosage: 600 UNK
     Route: 065
     Dates: start: 20150816, end: 20150818
  2. PEGFILGRASTIM [Concomitant]
     Active Substance: PEGFILGRASTIM
     Indication: Product used for unknown indication
     Dosage: 6 MG
     Dates: start: 20150518, end: 20150518
  3. PEGFILGRASTIM [Concomitant]
     Active Substance: PEGFILGRASTIM
     Dosage: 6 MG
     Dates: start: 20150608, end: 20150608
  4. PEGFILGRASTIM [Concomitant]
     Active Substance: PEGFILGRASTIM
     Dosage: 6 MG
     Dates: start: 20150629, end: 20150629
  5. PEGFILGRASTIM [Concomitant]
     Active Substance: PEGFILGRASTIM
     Dosage: 6 MG
     Dates: start: 20150720, end: 20150720
  6. APREPITANT [Concomitant]
     Active Substance: APREPITANT
     Indication: Product used for unknown indication
     Dosage: 80 MILLIGRAM
     Dates: start: 20150515
  7. APREPITANT [Concomitant]
     Active Substance: APREPITANT
     Dosage: 125 MILLIGRAM
     Dates: start: 20150515
  8. CYCLOPHOSPHAMIDE [Concomitant]
     Active Substance: CYCLOPHOSPHAMIDE
     Indication: Product used for unknown indication
     Dosage: 1260 MG
     Dates: start: 20150515, end: 20150515
  9. CYCLOPHOSPHAMIDE [Concomitant]
     Active Substance: CYCLOPHOSPHAMIDE
     Dosage: 1260 MILLIGRAM
     Dates: start: 20150605, end: 20150605
  10. CYCLOPHOSPHAMIDE [Concomitant]
     Active Substance: CYCLOPHOSPHAMIDE
     Dosage: 1260 MILLIGRAM
     Dates: start: 20150626, end: 20150626
  11. CYCLOPHOSPHAMIDE [Concomitant]
     Active Substance: CYCLOPHOSPHAMIDE
     Dosage: 1260 MILLIGRAM
     Dates: start: 20150717, end: 20150717
  12. DOXORUBICIN [Concomitant]
     Active Substance: DOXORUBICIN
     Indication: Product used for unknown indication
     Dosage: 84 MILLIGRAM
     Dates: start: 20150515, end: 20150515
  13. DOXORUBICIN [Concomitant]
     Active Substance: DOXORUBICIN
     Dosage: 84 MILLIGRAM
     Dates: start: 20150605, end: 20150605
  14. DOXORUBICIN [Concomitant]
     Active Substance: DOXORUBICIN
     Dosage: 84 MILLIGRAM
     Dates: start: 20150626, end: 20150626
  15. DOXORUBICIN [Concomitant]
     Active Substance: DOXORUBICIN
     Dosage: 84 MILLIGRAM
     Dates: start: 20150717, end: 20150717
  16. FAMOTIDINE [Concomitant]
     Active Substance: FAMOTIDINE
     Indication: Product used for unknown indication
     Dosage: 40 MILLIGRAM
     Dates: start: 20150508, end: 20150831
  17. METOCLOPRAMIDE [Concomitant]
     Active Substance: METOCLOPRAMIDE
     Indication: Product used for unknown indication
     Dosage: 30 MILLIGRAM
     Dates: start: 20150515, end: 20150831
  18. ACETAMINOPHEN [Concomitant]
     Active Substance: ACETAMINOPHEN
     Indication: Product used for unknown indication
     Dosage: 650 MILLIGRAM
     Dates: start: 20150515, end: 20150626
  19. ACETAMINOPHEN [Concomitant]
     Active Substance: ACETAMINOPHEN
     Dosage: 650 MILLIGRAM
     Dates: start: 20150717
  20. PREDNISOLONE [Concomitant]
     Active Substance: PREDNISOLONE
     Indication: Product used for unknown indication
     Dosage: 100 MILLIGRAM
     Dates: start: 20150515, end: 20150519
  21. PREDNISOLONE [Concomitant]
     Active Substance: PREDNISOLONE
     Dosage: 100 MILLIGRAM
     Dates: start: 20150605, end: 20150609
  22. PREDNISOLONE [Concomitant]
     Active Substance: PREDNISOLONE
     Dosage: 100 MILLIGRAM
     Dates: start: 20150626, end: 20150630
  23. PREDNISOLONE [Concomitant]
     Active Substance: PREDNISOLONE
     Dosage: 100 MILLIGRAM
     Dates: start: 20150717, end: 20150721
  24. PREGABALIN [Concomitant]
     Active Substance: PREGABALIN
     Indication: Product used for unknown indication
     Dosage: 300 MILLIGRAM
     Dates: start: 20150625
  25. RITUXIMAB [Concomitant]
     Active Substance: RITUXIMAB
     Indication: Product used for unknown indication
     Dosage: 600 MILLIGRAM
     Dates: start: 20150515, end: 20150515
  26. RITUXIMAB [Concomitant]
     Active Substance: RITUXIMAB
     Dosage: 600 MILLIGRAM
     Dates: start: 20150605, end: 20150605
  27. RITUXIMAB [Concomitant]
     Active Substance: RITUXIMAB
     Dosage: 600 MILLIGRAM
     Dates: start: 20150626, end: 20150626
  28. RITUXIMAB [Concomitant]
     Active Substance: RITUXIMAB
     Dosage: 600 MILLIGRAM
     Dates: start: 20150717, end: 20150717
  29. VINCRISTINE [Concomitant]
     Active Substance: VINCRISTINE
     Indication: Product used for unknown indication
     Dosage: 2 MILLIGRAM
     Dates: start: 20150515, end: 20150515
  30. VINCRISTINE [Concomitant]
     Active Substance: VINCRISTINE
     Dosage: 2 MILLIGRAM
     Dates: start: 20150605, end: 20150605
  31. VINCRISTINE [Concomitant]
     Active Substance: VINCRISTINE
     Dosage: 2 MILLIGRAM
     Dates: start: 20150626, end: 20150626
  32. VINCRISTINE [Concomitant]
     Active Substance: VINCRISTINE
     Dosage: 2 MILLIGRAM
     Dates: start: 20150717, end: 20150717

REACTIONS (1)
  - Neutropenia [Recovered/Resolved]

NARRATIVE: CASE EVENT DATE: 20150816
